FAERS Safety Report 7612004-6 (Version None)
Quarter: 2011Q3

REPORT INFORMATION
  Report Type: 
  Country: None (occurrence: None)
  Receive Date: 20110715
  Receipt Date: 20110706
  Transmission Date: 20111222
  Serious: Yes (Hospitalization)
  Sender: FDA-Public Use
  Company Number: US-SANOFI-AVENTIS-2011SA043875

PATIENT
  Age: 60 Year
  Sex: Female

DRUGS (4)
  1. LANTUS [Suspect]
     Dosage: DOSE:100 UNIT(S)
     Route: 058
     Dates: start: 20110101
  2. SOLOSTAR [Suspect]
     Indication: TYPE 2 DIABETES MELLITUS
     Dates: start: 20110101
  3. LANTUS [Suspect]
     Indication: TYPE 2 DIABETES MELLITUS
     Dosage: STARTED AT 2 UNITS AND INCREASED TO 72 UNITS AND THEN UP TO 100 UNITS DAILY DOSE:72 UNIT(S)
     Route: 058
     Dates: start: 20110101, end: 20110101
  4. LANTUS [Suspect]
     Dosage: DOSE:2 UNIT(S)
     Route: 058
     Dates: start: 20110101, end: 20110101

REACTIONS (2)
  - HOSPITALISATION [None]
  - BLOOD GLUCOSE INCREASED [None]
